FAERS Safety Report 6184471-9 (Version None)
Quarter: 2009Q2

REPORT INFORMATION
  Report Type: 
  Country: None (occurrence: None)
  Receive Date: 20090508
  Receipt Date: 20090414
  Transmission Date: 20091009
  Serious: No
  Sender: FDA-Public Use
  Company Number: B0571079A

PATIENT
  Sex: Female

DRUGS (1)
  1. RELENZA [Suspect]
     Dosage: 10MG PER DAY
     Route: 055
     Dates: start: 20090209

REACTIONS (1)
  - DRUG EXPOSURE DURING PREGNANCY [None]
